FAERS Safety Report 6386582-1 (Version None)
Quarter: 2009Q4

REPORT INFORMATION
  Report Type: 
  Country: None (occurrence: None)
  Receive Date: 20091002
  Receipt Date: 20090311
  Transmission Date: 20100525
  Serious: No
  Sender: FDA-Public Use
  Company Number: US-ASTRAZENECA-2009UW06425

PATIENT
  Age: 28945 Day
  Sex: Female
  Weight: 63 kg

DRUGS (4)
  1. ARIMIDEX [Suspect]
     Indication: BREAST CANCER
     Route: 048
     Dates: start: 20070701
  2. ATENOLOL [Concomitant]
  3. NIFEDIPINE [Concomitant]
  4. LEVOTHROID [Concomitant]

REACTIONS (3)
  - HYPOAESTHESIA [None]
  - INFLAMMATION [None]
  - SKIN BURNING SENSATION [None]
